FAERS Safety Report 18967261 (Version 1)
Quarter: 2021Q1

REPORT INFORMATION
  Report Type: Spontaneous
  Country: JP (occurrence: JP)
  Receive Date: 20210304
  Receipt Date: 20210304
  Transmission Date: 20210420
  Serious: Yes (Other)
  Sender: FDA-Public Use
  Company Number: JP-SUN PHARMACEUTICAL INDUSTRIES LTD-2021RR-282929

PATIENT
  Age: 76 Year
  Sex: Female

DRUGS (5)
  1. CALCIUM FOLINAT [Suspect]
     Active Substance: LEUCOVORIN CALCIUM
     Indication: GASTRIC CANCER
     Dosage: 200 MILLIGRAM/SQ. METER, 1DOSE/2 WEEKS
     Route: 042
  2. PACLITAXEL. [Suspect]
     Active Substance: PACLITAXEL
     Indication: GASTRIC CANCER
     Dosage: 80 MILLIGRAM/SQ. METER, ON DAYS 1, 8 AND 15 EVERY MONTH
     Route: 065
  3. OXALIPLATIN. [Suspect]
     Active Substance: OXALIPLATIN
     Indication: GASTRIC CANCER
     Dosage: 85 MILLIGRAM/SQ. METER, 1DOSE/2 WEEKS
     Route: 042
  4. 5?FLUOROURACIL [Suspect]
     Active Substance: FLUOROURACIL
     Indication: GASTRIC CANCER
     Dosage: 400 MILLIGRAM/SQ. METER, 1DOSE/2 WEEKS
     Route: 042
  5. 5?FLUOROURACIL [Suspect]
     Active Substance: FLUOROURACIL
     Dosage: 2400 MILLIGRAM/SQ. METER, 1DOSE/2 WEEKS
     Route: 042

REACTIONS (2)
  - Drug ineffective [Unknown]
  - Disease progression [Unknown]
